FAERS Safety Report 16438264 (Version 1)
Quarter: 2019Q2

REPORT INFORMATION
  Report Type: Spontaneous
  Country: US (occurrence: US)
  Receive Date: 20190617
  Receipt Date: 20190617
  Transmission Date: 20190711
  Serious: No
  Sender: FDA-Public Use
  Company Number: US-ELI_LILLY_AND_COMPANY-US201906003696

PATIENT
  Sex: Male

DRUGS (4)
  1. CIALIS [Suspect]
     Active Substance: TADALAFIL
     Indication: ERECTILE DYSFUNCTION
     Dosage: 5 MG, DAILY
     Route: 048
     Dates: start: 2016
  2. CIALIS [Interacting]
     Active Substance: TADALAFIL
     Dosage: 10 MG, DAILY
     Route: 048
  3. CIALIS [Interacting]
     Active Substance: TADALAFIL
     Dosage: 15 MG, DAILY
     Route: 048
  4. PHENTERMINE. [Interacting]
     Active Substance: PHENTERMINE
     Indication: WEIGHT DECREASED
     Dosage: 37.5 MG, DAILY
     Route: 065
     Dates: start: 20190516

REACTIONS (2)
  - Drug ineffective [Unknown]
  - Drug interaction [Unknown]

NARRATIVE: CASE EVENT DATE: 2016
